FAERS Safety Report 13593198 (Version 1)
Quarter: 2017Q2

REPORT INFORMATION
  Report Type: Spontaneous
  Country: US (occurrence: US)
  Receive Date: 20170530
  Receipt Date: 20170530
  Transmission Date: 20170830
  Serious: No
  Sender: FDA-Public Use
  Company Number: GXBR2017US001191

PATIENT
  Age: 80 Year
  Sex: Female
  Weight: 74.83 kg

DRUGS (2)
  1. OPSUMIT [Concomitant]
     Active Substance: MACITENTAN
     Indication: PRODUCT USED FOR UNKNOWN INDICATION
     Dosage: UNK DF, UNK
     Route: 065
  2. TIZANIDINE SANDOZ [Suspect]
     Active Substance: TIZANIDINE
     Indication: PRODUCT USED FOR UNKNOWN INDICATION
     Dosage: UNK DF, UNK
     Route: 065
     Dates: start: 201702

REACTIONS (3)
  - Tension headache [Unknown]
  - Neck pain [Unknown]
  - Muscle tightness [Unknown]

NARRATIVE: CASE EVENT DATE: 201702
